FAERS Safety Report 15441072 (Version 1)
Quarter: 2018Q3

REPORT INFORMATION
  Report Type: Spontaneous
  Country: US (occurrence: US)
  Receive Date: 20180925
  Receipt Date: 20180925
  Transmission Date: 20181010
  Serious: Yes (Death)
  Sender: FDA-Public Use
  Company Number: None

PATIENT
  Age: 76 Year
  Sex: Male

DRUGS (17)
  1. LOSARTAN POT TAB [Concomitant]
  2. POT CHLORIDE CAP 10MEQ ER [Concomitant]
  3. LETAIRIS [Concomitant]
     Active Substance: AMBRISENTAN
  4. PRADAXA CAP [Concomitant]
  5. AMLODIPINE TAB [Concomitant]
  6. ATORBASTATIN TAB [Concomitant]
  7. BUMETANIDE TAB [Concomitant]
  8. ELIQUIS TAB [Concomitant]
  9. AMLODIPINE TAB [Concomitant]
  10. LOSARTAN POT TAB [Concomitant]
  11. OMEPRAZOLE CAP [Concomitant]
     Active Substance: OMEPRAZOLE SODIUM
  12. FUROSEMIDE TAB [Concomitant]
  13. METOLAZONE TAB [Concomitant]
  14. POT CHLORIDE TAB 10MEQ ER [Concomitant]
  15. PRADAXA CAP [Concomitant]
  16. ESBRIET [Suspect]
     Active Substance: PIRFENIDONE
     Indication: IDIOPATHIC PULMONARY FIBROSIS
     Route: 048
     Dates: start: 20170905
  17. METOLAZONE TAB [Concomitant]

REACTIONS (1)
  - Death [None]

NARRATIVE: CASE EVENT DATE: 20180811
